FAERS Safety Report 12968040 (Version 1)
Quarter: 2016Q4

REPORT INFORMATION
  Report Type: Spontaneous
  Country: US (occurrence: US)
  Receive Date: 20161123
  Receipt Date: 20161123
  Transmission Date: 20170207
  Serious: Yes (Hospitalization, Other)
  Sender: FDA-Public Use
  Company Number: US-APOTEX-2016AP014828

PATIENT
  Age: 55 Year
  Sex: Male

DRUGS (3)
  1. COLCHICINE. [Interacting]
     Active Substance: COLCHICINE
     Indication: GOUT
     Dosage: UNK
     Route: 065
  2. FEBUXOSTAT. [Concomitant]
     Active Substance: FEBUXOSTAT
     Indication: GOUT
     Dosage: UNK
     Route: 065
  3. ATORVASTATIN CALCIUM. [Suspect]
     Active Substance: ATORVASTATIN CALCIUM
     Indication: PRODUCT USED FOR UNKNOWN INDICATION
     Dosage: UNK
     Route: 065

REACTIONS (2)
  - Rhabdomyolysis [Recovering/Resolving]
  - Drug interaction [Recovering/Resolving]
